FAERS Safety Report 8979675 (Version 1)
Quarter: 2012Q4

REPORT INFORMATION
  Report Type: 
  Country: ES (occurrence: ES)
  Receive Date: 20121221
  Receipt Date: 20121221
  Transmission Date: 20130627
  Serious: Yes (Other)
  Sender: FDA-Public Use
  Company Number: ES-COVIDIEN/TYCO HEALTHCARE/MALLINCKRODT-T201204390

PATIENT
  Age: 46 Year
  Sex: Male

DRUGS (4)
  1. EXALGO EXTENDED RELEASE [Suspect]
     Indication: MUSCULOSKELETAL PAIN
     Dosage: 32 mg, 1 in 1 day
     Route: 048
     Dates: start: 201007
  2. DULOXETINE [Suspect]
     Indication: MUSCULOSKELETAL PAIN
     Dosage: 60 mg, 1 in 1 day
     Route: 048
     Dates: start: 201006
  3. LYRICA [Concomitant]
     Indication: MUSCULOSKELETAL PAIN
     Dosage: 300 mg, 2 in 1 day
     Route: 048
     Dates: start: 201001
  4. FENTANYL [Concomitant]
     Indication: SCIATICA
     Dosage: 3 in 1 day
     Route: 045
     Dates: start: 201204, end: 201208

REACTIONS (3)
  - Ejaculation disorder [Unknown]
  - Erectile dysfunction [Not Recovered/Not Resolved]
  - Libido decreased [Unknown]
